FAERS Safety Report 8928392 (Version 4)
Quarter: 2013Q1

REPORT INFORMATION
  Report Type: Spontaneous
  Country: US (occurrence: US)
  Receive Date: 20121128
  Receipt Date: 20130207
  Transmission Date: 20140127
  Serious: Yes (Other)
  Sender: FDA-Public Use
  Company Number: US-009507513-1211USA010885

PATIENT
  Age: 33 Year
  Sex: Female
  Weight: 54.42 kg

DRUGS (8)
  1. CLARITIN-D 24 HOUR [Suspect]
     Indication: HEADACHE
     Dosage: UNK, UNKNOWN
     Route: 048
     Dates: start: 20121022
  2. CLARITIN-D 24 HOUR [Suspect]
     Indication: MEDICAL OBSERVATION
     Dosage: 10 MG, ONCE
     Route: 048
     Dates: start: 20121023
  3. CLARITIN-D 24 HOUR [Suspect]
     Dosage: 10 MG, QD
     Route: 048
     Dates: start: 20120711, end: 20120712
  4. KLONOPIN [Concomitant]
     Indication: BIPOLAR II DISORDER
     Dosage: UNK, UNKNOWN
  5. LEXAPRO [Concomitant]
     Indication: BIPOLAR II DISORDER
     Dosage: UNK, UNKNOWN
  6. LAMICTAL [Concomitant]
     Indication: BIPOLAR II DISORDER
     Dosage: UNK, UNKNOWN
  7. SALINE SPRAY [Concomitant]
     Indication: HYPERSENSITIVITY
     Dosage: UNK, UNKNOWN
  8. QNASL [Concomitant]
     Indication: HYPERSENSITIVITY
     Dosage: UNK, UNKNOWN

REACTIONS (6)
  - Syncope [Recovered/Resolved]
  - Dizziness [Recovered/Resolved]
  - Nausea [Recovered/Resolved]
  - Insomnia [Recovered/Resolved]
  - Blood pressure decreased [Recovered/Resolved]
  - Off label use [Unknown]
